FAERS Safety Report 5405208-4 (Version None)
Quarter: 2007Q3

REPORT INFORMATION
  Report Type: 
  Country: None (occurrence: None)
  Receive Date: 20070803
  Receipt Date: 20070725
  Transmission Date: 20080115
  Serious: Yes (Other)
  Sender: FDA-Public Use
  Company Number: JP-ELI_LILLY_AND_COMPANY-JP200707006395

PATIENT
  Age: 17 Year

DRUGS (4)
  1. HUMATROPE [Suspect]
     Indication: GROWTH HORMONE DEFICIENCY
     Dosage: 0.025MG/KG, DAILY(1/D)
     Route: 058
     Dates: start: 20070101
  2. CORTRIL [Concomitant]
     Indication: HYPOPITUITARISM
     Route: 048
  3. THYRADIN [Concomitant]
     Indication: HYPOPITUITARISM
     Route: 048
  4. DESMOPRESSIN [Concomitant]
     Indication: HYPOPITUITARISM

REACTIONS (1)
  - EPIPHYSIOLYSIS [None]
